FAERS Safety Report 24006244 (Version 1)
Quarter: 2024Q2

REPORT INFORMATION
  Report Type: Spontaneous
  Country: FR (occurrence: FR)
  Receive Date: 20240624
  Receipt Date: 20240624
  Transmission Date: 20240716
  Serious: Yes (Other)
  Sender: FDA-Public Use
  Company Number: FR-INCYTE CORPORATION-2024IN006544

PATIENT

DRUGS (1)
  1. OPZELURA [Suspect]
     Active Substance: RUXOLITINIB PHOSPHATE
     Dosage: 15 MILLIGRAM
     Route: 065
     Dates: start: 20240305

REACTIONS (1)
  - Ophthalmic herpes zoster [Unknown]

NARRATIVE: CASE EVENT DATE: 20240513
